FAERS Safety Report 17571185 (Version 4)
Quarter: 2020Q3

REPORT INFORMATION
  Report Type: Report from Study
  Country: US (occurrence: US)
  Receive Date: 20200323
  Receipt Date: 20200831
  Transmission Date: 20201102
  Serious: Yes (Other)
  Sender: FDA-Public Use
  Company Number: NVSC2020US078090

PATIENT
  Sex: Female

DRUGS (1)
  1. GILENYA [Suspect]
     Active Substance: FINGOLIMOD HYDROCHLORIDE
     Indication: MULTIPLE SCLEROSIS
     Dosage: 0.5 MG, QD
     Route: 048
     Dates: start: 20200301

REACTIONS (6)
  - Cataract [Unknown]
  - Skeletal injury [Unknown]
  - Decreased immune responsiveness [Unknown]
  - Lymphocyte count decreased [Unknown]
  - Foreign body in eye [Unknown]
  - Respiratory syncytial virus test positive [Unknown]
